FAERS Safety Report 5836369-0 (Version None)
Quarter: 2008Q3

REPORT INFORMATION
  Report Type: 
  Country: None (occurrence: None)
  Receive Date: 20080806
  Receipt Date: 20080806
  Transmission Date: 20090109
  Serious: Yes (Hospitalization)
  Sender: FDA-Public Use
  Company Number: None

PATIENT
  Age: 61 Year
  Sex: Female
  Weight: 41.0052 kg

DRUGS (10)
  1. BEVACIZUMAB 25MG/ML GENETECH [Suspect]
     Indication: GLIOBLASTOMA MULTIFORME
     Dosage: 10MG/KG Q 2 WEEKS IV DRIP 3 INFUSIONS
     Route: 041
     Dates: start: 20080529, end: 20080703
  2. INSULIN [Concomitant]
  3. INSULIN REGULAR SLIDING SCALE [Concomitant]
  4. CATAPRES [Concomitant]
  5. NEURONTIN [Concomitant]
  6. CLARITIN [Concomitant]
  7. GLUCOPHAGE [Concomitant]
  8. PRILOSEC [Concomitant]
  9. LISINOPRIL [Concomitant]
  10. VICODIN [Concomitant]

REACTIONS (6)
  - APHASIA [None]
  - ASTHENIA [None]
  - CONDITION AGGRAVATED [None]
  - FALL [None]
  - MUSCULAR WEAKNESS [None]
  - NEUROLOGICAL SYMPTOM [None]
